FAERS Safety Report 6494184-1 (Version None)
Quarter: 2009Q4

REPORT INFORMATION
  Report Type: 
  Country: None (occurrence: None)
  Receive Date: 20091214
  Receipt Date: 20090115
  Transmission Date: 20100525
  Serious: No
  Sender: FDA-Public Use
  Company Number: US-BRISTOL-MYERS SQUIBB COMPANY-14473656

PATIENT
  Age: 24 Year
  Sex: Female

DRUGS (6)
  1. ABILIFY [Suspect]
     Indication: MAJOR DEPRESSION
     Dosage: INITIAL DOSE 2.5 MG,QD FOR 1 YEAR; INCREASED TO 5MG; REDUCED TO 2.5MG.
  2. ABILIFY [Suspect]
     Indication: PANIC ATTACK
     Dosage: INITIAL DOSE 2.5 MG,QD FOR 1 YEAR; INCREASED TO 5MG; REDUCED TO 2.5MG.
  3. PAXIL [Suspect]
     Indication: MAJOR DEPRESSION
  4. PAXIL [Suspect]
     Indication: PANIC ATTACK
  5. KLONOPIN [Suspect]
     Indication: MAJOR DEPRESSION
  6. KLONOPIN [Suspect]
     Indication: PANIC ATTACK

REACTIONS (1)
  - AKATHISIA [None]
